FAERS Safety Report 7702619-9 (Version None)
Quarter: 2011Q3

REPORT INFORMATION
  Report Type: 
  Country: None (occurrence: None)
  Receive Date: 20110823
  Receipt Date: 20110812
  Transmission Date: 20111222
  Serious: No
  Sender: FDA-Public Use
  Company Number: US-BIOGENIDEC-2011BI031484

PATIENT
  Sex: Female

DRUGS (2)
  1. AVONEX [Suspect]
     Indication: MULTIPLE SCLEROSIS
     Route: 030
     Dates: start: 20100416
  2. AVONEX [Suspect]
     Route: 030

REACTIONS (6)
  - STRESS [None]
  - ALOPECIA [None]
  - MEMORY IMPAIRMENT [None]
  - FEELING HOT [None]
  - ANXIETY [None]
  - BALANCE DISORDER [None]
